FAERS Safety Report 7632308-0 (Version None)
Quarter: 2011Q3

REPORT INFORMATION
  Report Type: 
  Country: None (occurrence: None)
  Receive Date: 20110725
  Receipt Date: 20100722
  Transmission Date: 20111222
  Serious: No
  Sender: FDA-Public Use
  Company Number: US-BRISTOL-MYERS SQUIBB COMPANY-15205560

PATIENT
  Age: 93 Year
  Sex: Female

DRUGS (6)
  1. EVISTA [Concomitant]
     Dosage: 1DF=1 TAB; AT BEDTIME
  2. CALCIUM CARBONATE [Concomitant]
  3. CENTRUM [Concomitant]
     Dosage: CENTRUM MVI
  4. METOPROLOL TARTRATE [Concomitant]
     Dosage: AT BED TIME
  5. AMLODIPINE [Concomitant]
  6. COUMADIN [Suspect]
     Dosage: TAKEN 8 MONTHS AGO

REACTIONS (2)
  - INTERNATIONAL NORMALISED RATIO ABNORMAL [None]
  - HAEMORRHAGE [None]
